FAERS Safety Report 8852419 (Version 1)
Quarter: 2012Q4

REPORT INFORMATION
  Report Type: Spontaneous
  Country: US (occurrence: None)
  Receive Date: 20121017
  Receipt Date: 20121017
  Transmission Date: 20130627
  Serious: Yes (Other)
  Sender: FDA-Public Use
  Company Number: DSA_60169-2012

PATIENT
  Sex: Male

DRUGS (2)
  1. DILTIAZEM [Suspect]
     Dosage: (DF)
  2. DABIGATRAN [Concomitant]

REACTIONS (2)
  - Atrial fibrillation [None]
  - Drug ineffective [None]
